FAERS Safety Report 7818025-2 (Version None)
Quarter: 2011Q4

REPORT INFORMATION
  Report Type: 
  Country: None (occurrence: None)
  Receive Date: 20111017
  Receipt Date: 20111006
  Transmission Date: 20120403
  Serious: Yes (Hospitalization)
  Sender: FDA-Public Use
  Company Number: US-CELGENEUS-163-21880-11041712

PATIENT
  Sex: Female
  Weight: 56.4 kg

DRUGS (26)
  1. OXYCONTIN [Concomitant]
     Dosage: 30 MILLIGRAM
     Route: 048
  2. CARDIZEM [Concomitant]
     Dosage: 240 MILLIGRAM
     Route: 048
  3. REVLIMID [Suspect]
     Dosage: 10 MILLIGRAM
     Route: 048
  4. OXYCODONE HCL [Concomitant]
     Dosage: 5 MILLIGRAM
     Route: 048
  5. ZOMETA [Concomitant]
     Dosage: 4MG/5ML
     Route: 041
  6. MIRALAX [Concomitant]
     Dosage: 17 GRAM
     Route: 048
  7. JANTOVEN [Concomitant]
     Dosage: 2 MILLIGRAM
     Route: 048
  8. REVLIMID [Suspect]
     Dosage: 15 MILLIGRAM
     Route: 048
  9. GABAPENTIN [Concomitant]
     Dosage: 300 MG
     Route: 065
  10. LIDOCAINE-DIPHENHYD-AL-MAG-SIM [Concomitant]
     Dosage: 200-25-400-40MG/30ML
     Route: 048
  11. LIDODERM [Concomitant]
     Dosage: 1 5% (700MG)
     Route: 061
  12. TOPROL-XL [Concomitant]
     Dosage: 200 MILLIGRAM
     Route: 048
  13. KLOR-CON [Concomitant]
     Dosage: 20 MILLIEQUIVALENTS
     Route: 048
  14. PROCHLORPERAZINE [Concomitant]
     Dosage: 1-2
     Route: 048
  15. LISINOPRIL [Concomitant]
     Dosage: 10 MILLIGRAM
     Route: 048
  16. REVLIMID [Suspect]
     Indication: MULTIPLE MYELOMA
     Dosage: 15 MILLIGRAM
     Route: 048
     Dates: start: 20100712, end: 20100725
  17. REVLIMID [Suspect]
  18. METHYLPHENIDATE [Concomitant]
     Dosage: 5 MILLIGRAM
     Route: 048
  19. OMEPRAZOLE [Concomitant]
     Dosage: 20 MILLIGRAM
     Route: 048
  20. ACETAMINOPHEN [Concomitant]
     Dosage: 325 MILLIGRAM
     Route: 048
  21. DEXAMETHASONE [Concomitant]
     Dosage: 20 MILLIGRAM
     Route: 048
     Dates: start: 20110319
  22. VITAMIN B-12 [Concomitant]
     Route: 048
  23. ONDANSETRON [Concomitant]
     Dosage: 8 MILLIGRAM
     Route: 048
  24. WARFARIN SODIUM [Concomitant]
     Indication: ATRIAL FIBRILLATION
     Route: 065
  25. SENNA-GEN [Concomitant]
     Dosage: 8.6 MILLIGRAM
     Route: 048
  26. VELCADE [Concomitant]
     Route: 065
     Dates: start: 20110319

REACTIONS (2)
  - CARDIAC FAILURE CONGESTIVE [None]
  - CHOLECYSTITIS ACUTE [None]
